FAERS Safety Report 11002965 (Version 3)
Quarter: 2015Q3

REPORT INFORMATION
  Report Type: Spontaneous
  Country: KR (occurrence: KR)
  Receive Date: 20150408
  Receipt Date: 20150715
  Transmission Date: 20151125
  Serious: No
  Sender: FDA-Public Use
  Company Number: KR-009507513-1504KOR002012

PATIENT
  Age: 45 Year
  Sex: Male
  Weight: 66 kg

DRUGS (25)
  1. MUTERAN [Concomitant]
     Indication: ANTITUSSIVE THERAPY
     Dosage: 1 DOSE FORM (AMP), TID
     Route: 042
     Dates: start: 20141007, end: 20141010
  2. COLYTE [Concomitant]
     Active Substance: POLYETHYLENE GLYCOL 3350\POTASSIUM CHLORIDE\SODIUM BICARBONATE\SODIUM CHLORIDE\SODIUM SULFATE ANHYDROUS
     Indication: X-RAY WITH CONTRAST
     Dosage: 1 DOSE FORM (BOT), ONCE
     Route: 048
     Dates: start: 20141006, end: 20141006
  3. MIDAZOLAM [Concomitant]
     Active Substance: MIDAZOLAM\MIDAZOLAM HYDROCHLORIDE
     Indication: SEDATION
     Dosage: 0.6 DOSE FORM (AMP), ONCE
     Route: 042
     Dates: start: 20141010, end: 20141010
  4. TRAMADOL HYDROCHLORIDE. [Concomitant]
     Active Substance: TRAMADOL HYDROCHLORIDE
     Indication: INFLAMMATION
     Dosage: 1 DOSE FORM (AMP), ONCE
     Route: 042
     Dates: start: 20141012, end: 20141012
  5. YAMATETAN [Concomitant]
     Indication: ANTIBIOTIC THERAPY
     Dosage: 1 DOSE FORM (VIA), BID
     Route: 042
     Dates: start: 20141007, end: 20141008
  6. ANTIBIO (LACTOBACILLUS ACIDOPHILUS) [Concomitant]
     Indication: PROPHYLAXIS
     Dosage: 1 CAPSULE, TID
     Route: 048
     Dates: start: 20141011, end: 20141019
  7. ZINCTRACE (ZINC SULFATE) [Concomitant]
     Indication: MINERAL SUPPLEMENTATION
     Dosage: 1 DOSE FORM (VIA), ONCE
     Dates: start: 20141006, end: 20141006
  8. SMOFLIPID [Concomitant]
     Active Substance: FISH OIL\OLIVEOIL\SOYBEAN OIL\TRIGLYCERIDES,UNSPECIFIED LENGTH
     Indication: ASTHENIA
     Dosage: 1 DOSE FORM (BOT), ONCE
     Route: 042
     Dates: start: 20141011, end: 20141011
  9. ULTRACET [Concomitant]
     Active Substance: ACETAMINOPHEN\TRAMADOL HYDROCHLORIDE
     Indication: INFLAMMATION
     Dosage: 1 TABLET, BID
     Route: 048
     Dates: start: 20141011, end: 20141014
  10. TAMIPOOL [Concomitant]
     Indication: VITAMIN SUPPLEMENTATION
     Dosage: 1 DOSE FORM (VIA), QD
     Route: 042
     Dates: start: 20141008, end: 20141010
  11. BRIDION [Suspect]
     Active Substance: SUGAMMADEX
     Indication: NEUROMUSCULAR BLOCKADE REVERSAL
     Dosage: 132 MG (2 MG/KG), ONCE
     Route: 042
     Dates: start: 20141007, end: 20141007
  12. EPHEDRINE HYDROCHLORIDE [Concomitant]
     Active Substance: EPHEDRINE HYDROCHLORIDE
     Indication: PROPHYLAXIS
     Dosage: 4 MG, QD
     Route: 042
     Dates: start: 20141007
  13. GODEX CAP [Concomitant]
     Indication: LIVER DISORDER
     Dosage: 1 CAPSULE, TID
     Route: 048
     Dates: start: 20141012, end: 20141014
  14. KEROMIN [Concomitant]
     Indication: INFLAMMATION
     Dosage: 1 DOSE FORM (AMP), ONCE
     Route: 042
     Dates: start: 20141012, end: 20141012
  15. GASTER [Concomitant]
     Active Substance: FAMOTIDINE
     Indication: PEPTIC ULCER
     Dosage: 1 DOSE FORM (VIA), BID
     Route: 042
     Dates: start: 20141006, end: 20141006
  16. BOTROPASE [Concomitant]
     Indication: HAEMOSTASIS
     Dosage: 3 DOSE FORMS (AMP), TID
     Route: 042
     Dates: start: 20141007, end: 20141008
  17. MEPERIDINE HYDROCHLORIDE. [Concomitant]
     Active Substance: MEPERIDINE HYDROCHLORIDE
     Indication: STUPOR
     Dosage: 1 DOSE FORM(AMP), ONCE
     Route: 042
     Dates: start: 20141010, end: 20141010
  18. ROCURONIUM BROMIDE. [Suspect]
     Active Substance: ROCURONIUM BROMIDE
     Indication: HYPOTONIA
     Dosage: 60 MG, ONCE
     Route: 042
     Dates: start: 20141007, end: 20141007
  19. SMOFKABIVEN PERIPHERAL [Concomitant]
     Indication: PROTEIN DEFICIENCY
     Dosage: 1 DOSE FORM (BAG), QD
     Route: 042
     Dates: start: 20141008, end: 20141009
  20. DULCOLAX S [Concomitant]
     Indication: ENEMA ADMINISTRATION
     Dosage: 2 TABLETS, ONCE
     Route: 050
     Dates: start: 20141010, end: 20141010
  21. KETORAC [Concomitant]
     Indication: PAIN
     Dosage: 1 TABLET, TID
     Route: 048
     Dates: start: 20141011, end: 20141019
  22. ENCOVER [Concomitant]
     Indication: PROTEIN DEFICIENCY
     Dosage: 1 DOSE FORM (BAG), QD
     Route: 048
     Dates: start: 20141011, end: 20141019
  23. ALBIS [Concomitant]
     Active Substance: BISMUTH SUBCITRATE\RANITIDINE HYDROCHLORIDE\SUCRALFATE
     Indication: PEPTIC ULCER
     Dosage: 1 TABLET, BID
     Route: 048
     Dates: start: 20141011, end: 20141019
  24. CALDOLOR [Concomitant]
     Active Substance: IBUPROFEN
     Indication: INFLAMMATION
     Dosage: 1 DOSE FORM (VIA), TID
     Route: 042
     Dates: start: 20141007, end: 20141012
  25. ESBIX [Concomitant]
     Indication: HAEMOSTASIS
     Dosage: 3 DOSE FORMS (AMP), TID
     Route: 042
     Dates: start: 20141007, end: 20141008

REACTIONS (1)
  - Pyrexia [Recovered/Resolved]

NARRATIVE: CASE EVENT DATE: 20141012
